FAERS Safety Report 16679172 (Version 1)
Quarter: 2019Q3

REPORT INFORMATION
  Report Type: Spontaneous
  Country: US (occurrence: US)
  Receive Date: 20190624
  Receipt Date: 20190624
  Transmission Date: 20191004
  Serious: Yes (Hospitalization)
  Sender: FDA-Public Use
  Company Number: None

PATIENT
  Age: 64 Year
  Sex: Female

DRUGS (1)
  1. AFINITOR [Suspect]
     Active Substance: EVEROLIMUS
     Indication: UTERINE CANCER
     Route: 048
     Dates: start: 20190501

REACTIONS (3)
  - Confusional state [None]
  - Disorientation [None]
  - Dizziness [None]

NARRATIVE: CASE EVENT DATE: 20190610
